FAERS Safety Report 8853616 (Version 3)
Quarter: 2013Q4

REPORT INFORMATION
  Report Type: Spontaneous
  Country: US (occurrence: None)
  Receive Date: 20120426
  Receipt Date: 20131226
  Transmission Date: 20140711
  Serious: Yes (Other)
  Sender: FDA-Public Use
  Company Number: PHEH2011US012876

PATIENT
  Age: 44 Year
  Sex: Female

DRUGS (1)
  1. GILENYA [Suspect]
     Indication: MULTIPLE SCLEROSIS
     Route: 048
     Dates: start: 20111221, end: 20111229

REACTIONS (6)
  - Abdominal pain upper [None]
  - Influenza like illness [None]
  - Dyspnoea [None]
  - Back pain [None]
  - Incorrect dose administered [None]
  - Inappropriate schedule of drug administration [None]
